FAERS Safety Report 17685602 (Version 1)
Quarter: 2020Q2

REPORT INFORMATION
  Report Type: Report from Study
  Country: AU (occurrence: AU)
  Receive Date: 20200420
  Receipt Date: 20200420
  Transmission Date: 20200714
  Serious: Yes (Other)
  Sender: FDA-Public Use
  Company Number: NVSC2020AU104534

PATIENT
  Sex: Female

DRUGS (1)
  1. COSENTYX [Suspect]
     Active Substance: SECUKINUMAB
     Indication: PSORIATIC ARTHROPATHY
     Dosage: UNK UNK, QMO
     Route: 058
     Dates: start: 20180122

REACTIONS (3)
  - Basal cell carcinoma [Unknown]
  - Squamous cell carcinoma [Unknown]
  - Drug ineffective [Unknown]
